FAERS Safety Report 6138935-4 (Version None)
Quarter: 2009Q1

REPORT INFORMATION
  Report Type: 
  Country: None (occurrence: None)
  Receive Date: 20090331
  Receipt Date: 20090326
  Transmission Date: 20090719
  Serious: Yes (Other)
  Sender: FDA-Public Use
  Company Number: US-GILEAD-2009-0020277

PATIENT
  Age: 28 Year
  Sex: Female

DRUGS (7)
  1. LETAIRIS [Suspect]
     Indication: PULMONARY HYPERTENSION
     Dates: start: 20080430, end: 20090203
  2. WARFARIN SODIUM [Concomitant]
  3. PREDNISONE [Concomitant]
  4. SYNTHROID [Concomitant]
  5. HYDROXYCHLOROQUINE [Concomitant]
  6. CLOTRIMAZOLE [Concomitant]
  7. HYDROCORTISONE [Concomitant]

REACTIONS (1)
  - PREGNANCY [None]
